FAERS Safety Report 7833199-5 (Version None)
Quarter: 2011Q4

REPORT INFORMATION
  Report Type: 
  Country: None (occurrence: None)
  Receive Date: 20111024
  Receipt Date: 20111013
  Transmission Date: 20120403
  Serious: Yes (Hospitalization)
  Sender: FDA-Public Use
  Company Number: US-JNJFOC-20111006657

PATIENT
  Sex: Female
  Weight: 72.58 kg

DRUGS (5)
  1. LEXAPRO [Concomitant]
     Indication: ANXIETY
     Route: 048
     Dates: start: 20020101
  2. METHOTREXATE [Concomitant]
     Indication: ARTHRITIS
     Route: 048
     Dates: start: 20020101, end: 20110901
  3. SYNTHROID [Concomitant]
     Indication: THYROID DISORDER
     Route: 048
     Dates: start: 20020101
  4. REMICADE [Suspect]
     Indication: PSORIATIC ARTHROPATHY
     Route: 042
     Dates: start: 20090101, end: 20110101
  5. REMICADE [Suspect]
     Indication: RHEUMATOID ARTHRITIS
     Route: 042
     Dates: start: 20090101, end: 20110101

REACTIONS (6)
  - ABDOMINAL PAIN UPPER [None]
  - SINUSITIS [None]
  - WEIGHT INCREASED [None]
  - PYREXIA [None]
  - PNEUMONIA [None]
  - APHAGIA [None]
